FAERS Safety Report 10010049 (Version 1)
Quarter: 2014Q1

REPORT INFORMATION
  Report Type: Spontaneous
  Country: US (occurrence: US)
  Receive Date: 20140312
  Receipt Date: 20140312
  Transmission Date: 20141002
  Serious: No
  Sender: FDA-Public Use
  Company Number: US-INCYTE CORPORATION-2013IN000401

PATIENT
  Age: 67 Year
  Sex: Male

DRUGS (8)
  1. JAKAFI [Suspect]
     Indication: MYELOFIBROSIS
     Dosage: 25 MG, QD
  2. JAKAFI [Suspect]
     Dosage: 25 MG, BID
  3. MYLERAN [Concomitant]
  4. FUROSEMIDE [Concomitant]
  5. LEVOTHYROXINE [Concomitant]
  6. CARVEDILOL [Concomitant]
  7. DEFEROXAMINE [Concomitant]
  8. PROCRIT [Concomitant]

REACTIONS (1)
  - Haemoglobin abnormal [Unknown]
